FAERS Safety Report 10084804 (Version 1)
Quarter: 2014Q2

REPORT INFORMATION
  Report Type: Spontaneous
  Country: IT (occurrence: IT)
  Receive Date: 20140417
  Receipt Date: 20140417
  Transmission Date: 20141212
  Serious: Yes (Life-Threatening)
  Sender: FDA-Public Use
  Company Number: IT-TEVA-475849ISR

PATIENT
  Age: 51 Year
  Sex: Male
  Weight: 80 kg

DRUGS (5)
  1. CARBOLITHIUM 150 MG [Suspect]
     Dosage: 80 DOSAGE FORMS DAILY;
     Route: 048
     Dates: start: 20140330, end: 20140330
  2. DELORAZEPAM [Suspect]
     Dosage: 80 MILLIGRAM DAILY;
     Route: 048
     Dates: start: 20140330, end: 20140330
  3. PAROXETINA [Suspect]
     Dosage: 140 MILLIGRAM DAILY;
     Route: 048
     Dates: start: 20140330, end: 20140330
  4. SEROQUEL 200 MG [Suspect]
     Dosage: 170 DOSAGE FORMS DAILY;
     Route: 048
     Dates: start: 20140330, end: 20140330
  5. ETILTOX 200 MG [Suspect]
     Dosage: 10 DOSAGE FORMS DAILY;
     Route: 048
     Dates: start: 20140330, end: 20140330

REACTIONS (5)
  - Coma [Recovered/Resolved]
  - Respiratory failure [Recovered/Resolved]
  - Hyporeflexia [Recovered/Resolved]
  - Intentional self-injury [Recovered/Resolved]
  - Drug abuse [Unknown]
